FAERS Safety Report 13494930 (Version 1)
Quarter: 2017Q2

REPORT INFORMATION
  Report Type: Spontaneous
  Country: IT (occurrence: IT)
  Receive Date: 20170428
  Receipt Date: 20170428
  Transmission Date: 20170830
  Serious: Yes (Hospitalization)
  Sender: FDA-Public Use
  Company Number: IT-ACCORD-050873

PATIENT
  Age: 71 Year
  Sex: Male

DRUGS (3)
  1. RAMIPRIL. [Concomitant]
     Active Substance: RAMIPRIL
     Dosage: DOSE: 5MG DAILY
  2. METHOTREXATE. [Suspect]
     Active Substance: METHOTREXATE
     Indication: RHEUMATOID ARTHRITIS
     Dosage: STARTED 5 YEARS BEFORE,??MTX WAS WITHDRAWN
  3. ALFUZOSIN [Concomitant]
     Active Substance: ALFUZOSIN
     Dosage: DOSE: 0.4 MG DAILY

REACTIONS (1)
  - Autonomic nervous system imbalance [Not Recovered/Not Resolved]
